FAERS Safety Report 11852715 (Version 3)
Quarter: 2016Q1

REPORT INFORMATION
  Report Type: Report from Study
  Country: NL (occurrence: NL)
  Receive Date: 20151218
  Receipt Date: 20160222
  Transmission Date: 20160526
  Serious: Yes (Death, Life-Threatening, Other)
  Sender: FDA-Public Use
  Company Number: NL-ABBVIE-15P-114-1521392-00

PATIENT
  Age: 85 Year
  Sex: Male

DRUGS (3)
  1. DUODOPA [Suspect]
     Active Substance: CARBIDOPA\LEVODOPA
     Indication: PARKINSON^S DISEASE
     Dosage: 20/5MG/ML: MD:7.5, CD: 3.1, ED: 1.0, ND: NONE
     Route: 050
     Dates: start: 20131212
  2. FUROSEMIDE. [Concomitant]
     Active Substance: FUROSEMIDE
     Indication: PRODUCT USED FOR UNKNOWN INDICATION
     Route: 048
  3. METOPROLOL. [Concomitant]
     Active Substance: METOPROLOL
     Indication: PRODUCT USED FOR UNKNOWN INDICATION
     Route: 048

REACTIONS (2)
  - Death [Fatal]
  - Terminal state [Not Recovered/Not Resolved]

NARRATIVE: CASE EVENT DATE: 20160101
